FAERS Safety Report 17829054 (Version 9)
Quarter: 2021Q2

REPORT INFORMATION
  Report Type: Report from Study
  Country: US (occurrence: US)
  Receive Date: 20200527
  Receipt Date: 20210414
  Transmission Date: 20210717
  Serious: Yes (Other)
  Sender: FDA-Public Use
  Company Number: NVSC2020US143078

PATIENT
  Sex: Female

DRUGS (3)
  1. BEOVU [Suspect]
     Active Substance: BROLUCIZUMAB-DBLL
     Dosage: UNK
     Route: 047
     Dates: start: 20200421
  2. BEOVU [Suspect]
     Active Substance: BROLUCIZUMAB-DBLL
     Indication: NEOVASCULAR AGE-RELATED MACULAR DEGENERATION
     Dosage: UNK
     Route: 047
     Dates: start: 19670421
  3. BEOVU [Suspect]
     Active Substance: BROLUCIZUMAB-DBLL
     Dosage: UNK
     Route: 047

REACTIONS (9)
  - Asthenia [Unknown]
  - Hypersomnia [Unknown]
  - Intra-ocular injection complication [Recovering/Resolving]
  - Cerebrovascular accident [Unknown]
  - Cough [Unknown]
  - Dyspnoea [Unknown]
  - Cold-stimulus headache [Unknown]
  - Visual acuity reduced [Unknown]
  - Vitreous floaters [Recovering/Resolving]
